FAERS Safety Report 17527208 (Version 1)
Quarter: 2020Q1

REPORT INFORMATION
  Report Type: Spontaneous
  Country: US (occurrence: US)
  Receive Date: 20200303
  Receipt Date: 20200303
  Transmission Date: 20200409
  Serious: Yes (Death)
  Sender: FDA-Public Use
  Company Number: None

PATIENT
  Age: 49 Year
  Sex: Male

DRUGS (1)
  1. ALYQ [Suspect]
     Active Substance: TADALAFIL
     Indication: ATRIOVENTRICULAR DISSOCIATION
     Route: 048
     Dates: start: 20180129

REACTIONS (1)
  - Seizure [None]

NARRATIVE: CASE EVENT DATE: 20200220
